FAERS Safety Report 21493194 (Version 1)
Quarter: 2022Q4

REPORT INFORMATION
  Report Type: Spontaneous
  Country: US (occurrence: US)
  Receive Date: 20221021
  Receipt Date: 20221021
  Transmission Date: 20230113
  Serious: Yes (Other)
  Sender: FDA-Public Use
  Company Number: US-MAYNE PHARMA-2022MYN001293

PATIENT

DRUGS (2)
  1. NEXTSTELLIS [Suspect]
     Active Substance: DROSPIRENONE\ESTETROL MONOHYDRATE
     Indication: Heavy menstrual bleeding
     Dosage: 3 MG, AS DIRECTED
     Route: 048
  2. NEXTSTELLIS [Suspect]
     Active Substance: DROSPIRENONE\ESTETROL MONOHYDRATE
     Dosage: 14.2 MG, AS DIRECTED
     Route: 048

REACTIONS (2)
  - Blindness transient [Recovered/Resolved]
  - Off label use [Unknown]
